FAERS Safety Report 18649430 (Version 1)
Quarter: 2020Q4

REPORT INFORMATION
  Report Type: Spontaneous
  Country: FR (occurrence: FR)
  Receive Date: 20201222
  Receipt Date: 20201222
  Transmission Date: 20210114
  Serious: Yes (Life-Threatening, Hospitalization, Other)
  Sender: FDA-Public Use
  Company Number: FR-MYLANLABS-2020M1103622

PATIENT
  Age: 58 Year

DRUGS (2)
  1. BUPRENORPHINE. [Suspect]
     Active Substance: BUPRENORPHINE
     Indication: PRODUCT USED FOR UNKNOWN INDICATION
     Dosage: 70 DOSAGE FORM TABLET
     Route: 048
  2. NALOXONE [Suspect]
     Active Substance: NALOXONE
     Indication: TOXICITY TO VARIOUS AGENTS
     Route: 065

REACTIONS (8)
  - Suicide attempt [Unknown]
  - Coma [Unknown]
  - Pneumonitis [Unknown]
  - Drug ineffective [Unknown]
  - Toxicity to various agents [Unknown]
  - Neurological symptom [Unknown]
  - Respiratory depression [Unknown]
  - Overdose [Unknown]
